FAERS Safety Report 4328615-X (Version None)
Quarter: 2004Q1

REPORT INFORMATION
  Report Type: 
  Country: None (occurrence: None)
  Receive Date: 20040319
  Receipt Date: 20031209
  Transmission Date: 20041129
  Serious: No
  Sender: FDA-Public Use
  Company Number: US-JNJFOC-20031202511

PATIENT
  Age: 41 Year
  Sex: Female
  Weight: 49.8957 kg

DRUGS (3)
  1. ORTHO EVRA [Suspect]
     Indication: CONTRACEPTION
     Dosage: 1 DOSE (S), 3 IN 4 WEEK, TRANSDERMAL
     Route: 062
     Dates: start: 20031208
  2. FLONASE [Concomitant]
  3. FLOVENT (FLUCICASONE PROPIONATE) [Concomitant]

REACTIONS (2)
  - NAUSEA [None]
  - VOMITING [None]
